FAERS Safety Report 12456217 (Version 1)
Quarter: 2016Q2

REPORT INFORMATION
  Report Type: Report from Study
  Country: AU (occurrence: AU)
  Receive Date: 20160610
  Receipt Date: 20160610
  Transmission Date: 20160815
  Serious: Yes (Other)
  Sender: FDA-Public Use
  Company Number: AU-ABBVIE-16K-008-1584716-00

PATIENT
  Age: 71 Year
  Sex: Female

DRUGS (1)
  1. HUMIRA [Suspect]
     Active Substance: ADALIMUMAB
     Indication: ANKYLOSING SPONDYLITIS
     Route: 058
     Dates: start: 20150928

REACTIONS (10)
  - Pain in extremity [Recovering/Resolving]
  - Eye movement disorder [Recovering/Resolving]
  - Anxiety [Not Recovered/Not Resolved]
  - Lower respiratory tract infection [Recovered/Resolved]
  - Cerebrovascular accident [Recovering/Resolving]
  - Depression [Not Recovered/Not Resolved]
  - Blindness unilateral [Recovering/Resolving]
  - Visual acuity reduced [Recovering/Resolving]
  - Skin cancer [Recovering/Resolving]
  - Balance disorder [Recovering/Resolving]

NARRATIVE: CASE EVENT DATE: 201602
